FAERS Safety Report 4795727-6 (Version None)
Quarter: 2005Q3

REPORT INFORMATION
  Report Type: 
  Country: None (occurrence: None)
  Receive Date: 20050916
  Receipt Date: 20050214
  Transmission Date: 20060218
  Serious: Yes (Other)
  Sender: FDA-Public Use
  Company Number: NSADSS2002023503

PATIENT
  Age: 60 Year
  Sex: Female

DRUGS (2)
  1. TOPAMAX [Suspect]
     Indication: PAIN
     Dosage: 200 MG, ORAL
     Route: 048
     Dates: start: 20010701, end: 20011218
  2. COSOPT [Concomitant]

REACTIONS (3)
  - AMAUROSIS FUGAX [None]
  - ANGLE CLOSURE GLAUCOMA [None]
  - TEMPORAL ARTERITIS [None]
